FAERS Safety Report 18962464 (Version 3)
Quarter: 2021Q2

REPORT INFORMATION
  Report Type: Spontaneous
  Country: AT (occurrence: AT)
  Receive Date: 20210303
  Receipt Date: 20210416
  Transmission Date: 20210717
  Serious: Yes (Life-Threatening, Hospitalization)
  Sender: FDA-Public Use
  Company Number: AT-NOVOPROD-791270

PATIENT
  Age: 64 Year
  Sex: Male

DRUGS (1)
  1. TRESIBA [Suspect]
     Active Substance: INSULIN DEGLUDEC
     Indication: PRODUCT USED FOR UNKNOWN INDICATION
     Dosage: UNK
     Route: 065
     Dates: start: 201901

REACTIONS (5)
  - Incorrect dose administered by device [Unknown]
  - Device malfunction [Unknown]
  - Diabetic hyperglycaemic coma [Recovered/Resolved]
  - Diabetic hyperglycaemic coma [Recovered/Resolved]
  - Diabetic hyperglycaemic coma [Recovered/Resolved]

NARRATIVE: CASE EVENT DATE: 20200529
